FAERS Safety Report 23823199 (Version 1)
Quarter: 2024Q2

REPORT INFORMATION
  Report Type: Spontaneous
  Country: US (occurrence: US)
  Receive Date: 20240507
  Receipt Date: 20240507
  Transmission Date: 20240716
  Serious: Yes (Other)
  Sender: FDA-Public Use
  Company Number: US-HALEON-2171945

PATIENT
  Age: 9 Year
  Sex: Male
  Weight: 38.6 kg

DRUGS (8)
  1. IBUPROFEN [Suspect]
     Active Substance: IBUPROFEN
     Indication: Pain
     Route: 048
  2. LINEZOLID [Concomitant]
     Active Substance: LINEZOLID
     Indication: Product used for unknown indication
     Dosage: EVERY 12 HOUR
     Route: 042
  3. ACETAMINOPHEN [Suspect]
     Active Substance: ACETAMINOPHEN
     Indication: Scrotal pain
  4. CEFDINIR [Concomitant]
     Active Substance: CEFDINIR
     Indication: Urinary tract infection
     Dosage: EVERY 12 HOUR
  5. VANCOMYCIN [Suspect]
     Active Substance: VANCOMYCIN
     Indication: Evidence based treatment
     Dosage: EVERY EIGHT HOUR
     Route: 042
  6. PIPERACILLIN SODIUM\TAZOBACTAM SODIUM [Suspect]
     Active Substance: PIPERACILLIN SODIUM\TAZOBACTAM SODIUM
     Indication: Evidence based treatment
     Dosage: EVERY 6 HOUR
  7. POTASSIUM CHLORIDE [Concomitant]
     Active Substance: POTASSIUM CHLORIDE
     Indication: Product used for unknown indication
     Route: 048
  8. dextrose and sodium chloride 0.9 % [Concomitant]
     Indication: Product used for unknown indication
     Dosage: SODIUM CHLORIDE 0.9%
     Route: 042

REACTIONS (2)
  - Acute kidney injury [Unknown]
  - Drug ineffective [Unknown]
